FAERS Safety Report 16460100 (Version 1)
Quarter: 2019Q2

REPORT INFORMATION
  Report Type: Spontaneous
  Country: US (occurrence: US)
  Receive Date: 20190620
  Receipt Date: 20190620
  Transmission Date: 20190711
  Serious: No
  Sender: FDA-Public Use
  Company Number: US-TEVA-2019-US-1063179

PATIENT

DRUGS (2)
  1. SOLIFENACIN SUCCINATE TABLETS TEVA [Suspect]
     Active Substance: SOLIFENACIN SUCCINATE
     Indication: HYPERTONIC BLADDER
     Dosage: 10 MILLIGRAM DAILY;
     Dates: start: 20190512
  2. SOLIFENACIN SUCCINATE TABLETS TEVA [Suspect]
     Active Substance: SOLIFENACIN SUCCINATE
     Indication: BLADDER DISORDER

REACTIONS (2)
  - Drug ineffective [Unknown]
  - Product substitution issue [Unknown]

NARRATIVE: CASE EVENT DATE: 20190512
